APPROVED DRUG PRODUCT: SODIUM CHLORIDE 0.9% IN PLASTIC CONTAINER
Active Ingredient: SODIUM CHLORIDE
Strength: 900MG/100ML
Dosage Form/Route: SOLUTION;INJECTION
Application: A211968 | Product #002 | TE Code: AP
Applicant: NEPHRON PHARMACEUTICALS CORPORATION
Approved: Apr 23, 2020 | RLD: No | RS: No | Type: RX